FAERS Safety Report 15976431 (Version 2)
Quarter: 2019Q2

REPORT INFORMATION
  Report Type: Report from Study
  Country: None (occurrence: US)
  Receive Date: 20190218
  Receipt Date: 20190425
  Transmission Date: 20190711
  Serious: Yes (Other)
  Sender: FDA-Public Use
  Company Number: US-ABBVIE-19S-163-2662628-00

PATIENT
  Age: 71 Year
  Sex: Female
  Weight: 72.64 kg

DRUGS (5)
  1. METFORMIN [Concomitant]
     Active Substance: METFORMIN HYDROCHLORIDE
     Indication: DIABETES MELLITUS
  2. CREON [Suspect]
     Active Substance: PANCRELIPASE AMYLASE\PANCRELIPASE LIPASE\PANCRELIPASE PROTEASE
     Indication: PANCREATITIS CHRONIC
     Dosage: TWO BEFORE EACH MEAL AND ONE WITH A SNACK
     Route: 048
  3. CRESTOR [Concomitant]
     Active Substance: ROSUVASTATIN CALCIUM
     Indication: BLOOD CHOLESTEROL INCREASED
  4. MULTIVITAMIN [Concomitant]
     Active Substance: VITAMINS
     Indication: VITAMIN SUPPLEMENTATION
  5. PREDNISONE. [Suspect]
     Active Substance: PREDNISONE
     Indication: PRODUCT USED FOR UNKNOWN INDICATION
     Route: 048

REACTIONS (14)
  - Anaemia [Unknown]
  - Gastric antral vascular ectasia [Unknown]
  - Blood glucose increased [Recovered/Resolved]
  - Dysphagia [Unknown]
  - Abdominal pain [Unknown]
  - Diverticulum intestinal [Unknown]
  - Stomatitis [Recovering/Resolving]
  - Blood glucose increased [Recovered/Resolved]
  - Asthenia [Recovering/Resolving]
  - Abdominal distension [Unknown]
  - Gastric haemorrhage [Recovered/Resolved]
  - Diaphragmatic hernia [Unknown]
  - Dyspepsia [Unknown]
  - Diarrhoea [Unknown]

NARRATIVE: CASE EVENT DATE: 2017
